FAERS Safety Report 8103280-4 (Version None)
Quarter: 2012Q1

REPORT INFORMATION
  Report Type: 
  Country: None (occurrence: None)
  Receive Date: 20120127
  Receipt Date: 20120119
  Transmission Date: 20120608
  Serious: Yes (Death, Hospitalization)
  Sender: FDA-Public Use
  Company Number: A0962463A

PATIENT
  Age: 45 Year
  Sex: Male

DRUGS (2)
  1. CITALOPRAM (FORMULATION UNKNOWN) (CITALOPRAM) (UNKNOWN) [Suspect]
  2. PAROXETINE HYDROCHLORIDE [Suspect]

REACTIONS (12)
  - BRADYCARDIA [None]
  - HYPOTENSION [None]
  - COMPLETED SUICIDE [None]
  - BLOOD PRESSURE SYSTOLIC INCREASED [None]
  - SEROTONIN SYNDROME [None]
  - MUSCLE RIGIDITY [None]
  - NO THERAPEUTIC RESPONSE [None]
  - MYOCARDIAL INFARCTION [None]
  - FOAMING AT MOUTH [None]
  - UNRESPONSIVE TO STIMULI [None]
  - HYPOXIC-ISCHAEMIC ENCEPHALOPATHY [None]
  - MULTIPLE DRUG OVERDOSE INTENTIONAL [None]
